FAERS Safety Report 23231458 (Version 1)
Quarter: 2023Q4

REPORT INFORMATION
  Report Type: Spontaneous
  Country: US (occurrence: US)
  Receive Date: 20231127
  Receipt Date: 20231127
  Transmission Date: 20240110
  Serious: No
  Sender: FDA-Public Use
  Company Number: US-AVADEL CNS PHARMACEUTICALS, LLC-2023AVA00173

PATIENT
  Sex: Female

DRUGS (19)
  1. LUMRYZ [Suspect]
     Active Substance: SODIUM OXYBATE
     Indication: Narcolepsy
     Dosage: 4.5 G, 1X/DAY NIGHTLY
     Route: 048
     Dates: start: 20230908, end: 2023
  2. LUMRYZ [Suspect]
     Active Substance: SODIUM OXYBATE
     Indication: Cataplexy
  3. LUMRYZ [Suspect]
     Active Substance: SODIUM OXYBATE
     Indication: Narcolepsy
     Dosage: 6 G, 1X/DAY, AT NIGHT
     Route: 048
     Dates: start: 2023, end: 20231020
  4. LUMRYZ [Suspect]
     Active Substance: SODIUM OXYBATE
     Indication: Cataplexy
     Dosage: 6 G, 1X/DAY, AT NIGHT
     Route: 048
     Dates: start: 20231022
  5. ALCOHOL [Suspect]
     Active Substance: ALCOHOL
     Dosage: UNK
     Dates: start: 202309, end: 202309
  6. VITAMINS NOS [Concomitant]
     Active Substance: VITAMINS
  7. PROBIOTIC 10 [BIFIDOBACTERIUM BIFIDUM;BIFIDOBACTERIUM LACTIS;LACTIPLAN [Concomitant]
  8. OMEGA 3 6 9 [BORAGO OFFICINALIS OIL;FISH OIL;LINUM USITATISSIMUM OIL] [Concomitant]
     Dosage: 1200 MG
  9. BIOTIN [Concomitant]
     Active Substance: BIOTIN
     Dosage: 10000 ?G
  10. HERBALS\TURMERIC [Concomitant]
     Active Substance: HERBALS\TURMERIC
     Dosage: 1053 MG
  11. LYSINE [Concomitant]
     Active Substance: LYSINE
     Dosage: 500 MG
  12. AZO URINARY TRACT DEFENSE [Concomitant]
  13. DROSPIRENONE\ETHINYL ESTRADIOL\LEVOMEFOLATE CALCIUM [Concomitant]
     Active Substance: DROSPIRENONE\ETHINYL ESTRADIOL\LEVOMEFOLATE CALCIUM
  14. ACYCLOVIR [Concomitant]
     Active Substance: ACYCLOVIR
     Dosage: 400 MG
  15. WAKIX [Concomitant]
     Active Substance: PITOLISANT HYDROCHLORIDE
     Dosage: 17.8 MG
  16. SERTRALINE HYDROCHLORIDE [Concomitant]
     Active Substance: SERTRALINE HYDROCHLORIDE
     Dosage: 25 MG
  17. PROPRANOLOL HYDROCHLORIDE [Concomitant]
     Active Substance: PROPRANOLOL HYDROCHLORIDE
     Dosage: 10 MG
  18. FOLIC ACID [Concomitant]
     Active Substance: FOLIC ACID
  19. VALACYCLOVIR [Concomitant]
     Active Substance: VALACYCLOVIR HYDROCHLORIDE

REACTIONS (20)
  - Pharyngitis streptococcal [Unknown]
  - Middle insomnia [Not Recovered/Not Resolved]
  - Insomnia [Not Recovered/Not Resolved]
  - Hypervigilance [Not Recovered/Not Resolved]
  - Depressed level of consciousness [Unknown]
  - Mental impairment [Unknown]
  - Feeling abnormal [Unknown]
  - Tinnitus [Unknown]
  - Illness [Unknown]
  - Fatigue [Unknown]
  - Feeling hot [Not Recovered/Not Resolved]
  - Nasopharyngitis [Unknown]
  - Nocturia [Unknown]
  - Feeling drunk [Unknown]
  - Nausea [Unknown]
  - Paraesthesia [Unknown]
  - Somnolence [Unknown]
  - Therapeutic response shortened [Not Recovered/Not Resolved]
  - Contraindicated product administered [Recovered/Resolved]
  - Product dose omission issue [Recovered/Resolved]

NARRATIVE: CASE EVENT DATE: 20230101
